FAERS Safety Report 7716101-6 (Version None)
Quarter: 2011Q3

REPORT INFORMATION
  Report Type: 
  Country: None (occurrence: None)
  Receive Date: 20110829
  Receipt Date: 20110824
  Transmission Date: 20111222
  Serious: Yes (Other)
  Sender: FDA-Public Use
  Company Number: CA-GLAXOSMITHKLINE-A0942060A

PATIENT
  Sex: Female

DRUGS (3)
  1. ADVAIR DISKUS 100/50 [Suspect]
     Indication: CHRONIC OBSTRUCTIVE PULMONARY DISEASE
     Dosage: 1PUFF TWICE PER DAY
     Route: 055
     Dates: start: 20100101
  2. SPIRIVA [Concomitant]
  3. APO-SALVENT [Concomitant]
     Dosage: 2PUFF AS REQUIRED

REACTIONS (3)
  - DYSPNOEA [None]
  - APHASIA [None]
  - CHEST DISCOMFORT [None]
